FAERS Safety Report 12562116 (Version 4)
Quarter: 2017Q3

REPORT INFORMATION
  Report Type: Spontaneous
  Country: BE (occurrence: BE)
  Receive Date: 20160715
  Receipt Date: 20170823
  Transmission Date: 20171127
  Serious: Yes (Death, Other)
  Sender: FDA-Public Use
  Company Number: BE-JNJFOC-20160711988

PATIENT

DRUGS (4)
  1. RIBAVIRIN. [Suspect]
     Active Substance: RIBAVIRIN
     Indication: HEPATITIS C
     Route: 065
  2. SIMEPREVIR [Suspect]
     Active Substance: SIMEPREVIR
     Indication: HEPATITIS C
     Dosage: 12 WEEKS
     Route: 048
  3. SOFOSBUVIR [Suspect]
     Active Substance: SOFOSBUVIR
     Indication: HEPATITIS C
     Dosage: 12 WEEKS
     Route: 048
  4. RIBAVIRIN. [Suspect]
     Active Substance: RIBAVIRIN
     Indication: HEPATITIS C
     Dosage: LESS THAN 75 KG (1000 MG/DAY) AND MORE THAN 75 KG, 1200 MG/DAY IN 2 DOSES.
     Route: 065

REACTIONS (10)
  - Nausea [Unknown]
  - Off label use [Unknown]
  - Hepatorenal syndrome [Unknown]
  - Headache [Unknown]
  - Hepatic failure [Fatal]
  - Anaemia [Unknown]
  - Pruritus [Unknown]
  - Remission not achieved [Unknown]
  - Asthenia [Unknown]
  - Product use issue [Unknown]
